FAERS Safety Report 5142744-2 (Version None)
Quarter: 2006Q4

REPORT INFORMATION
  Report Type: 
  Country: None (occurrence: None)
  Receive Date: 20061027
  Receipt Date: 20061016
  Transmission Date: 20070319
  Serious: Yes (Death, Hospitalization)
  Sender: FDA-Public Use
  Company Number: US200610000873

PATIENT
  Age: 59 Year
  Sex: Female

DRUGS (4)
  1. GEMZAR [Suspect]
     Indication: BILE DUCT CANCER
     Dosage: 1790 MG INTRAVENOUS
     Route: 042
     Dates: start: 20010101, end: 20060101
  2. OXYCONTIN [Concomitant]
  3. PAXIL [Concomitant]
  4. DURAGESIC-100 [Concomitant]

REACTIONS (1)
  - DISEASE PROGRESSION [None]
